FAERS Safety Report 9933677 (Version 2)
Quarter: 2014Q1

REPORT INFORMATION
  Report Type: Report from Study
  Country: US (occurrence: US)
  Receive Date: 20140228
  Receipt Date: 20140228
  Transmission Date: 20141002
  Serious: No
  Sender: FDA-Public Use
  Company Number: US-MYLANLABS-2013S1010495

PATIENT
  Age: 32 Year
  Sex: Female
  Weight: 47.63 kg

DRUGS (4)
  1. AMNESTEEM CAPSULES [Suspect]
     Indication: ACNE
     Dosage: ONE, 20MG CAPSULE BID EVERY OTHER DAY
     Route: 048
     Dates: start: 201302, end: 20130506
  2. AMNESTEEM CAPSULES [Suspect]
     Indication: ACNE
     Dosage: TWO, 20MG CAPSULES QAM AND ONE, 20MG CAPSULE HS, EVERY OTHER DAY.
     Route: 048
     Dates: start: 201302, end: 20130506
  3. NEURONTIN [Concomitant]
     Dosage: PATIENT DOES NOT CONSIDER AS A SUSPECT TO EVENT.
     Route: 048
  4. PLAVIX [Concomitant]
     Indication: EMBOLISM
     Dosage: PATIENT DOES NOT CONSIDER AS A SUSPECT TO EVENT.
     Route: 048

REACTIONS (1)
  - Alopecia [Not Recovered/Not Resolved]
